FAERS Safety Report 5380872-7 (Version None)
Quarter: 2007Q3

REPORT INFORMATION
  Report Type: 
  Country: None (occurrence: None)
  Receive Date: 20070706
  Receipt Date: 20070626
  Transmission Date: 20080115
  Serious: Yes (Hospitalization)
  Sender: FDA-Public Use
  Company Number: US-JNJFOC-20070606569

PATIENT
  Age: 29 Year
  Sex: Female
  Weight: 65.77 kg

DRUGS (6)
  1. TOPAMAX [Suspect]
     Route: 048
  2. TOPAMAX [Suspect]
     Route: 048
  3. TOPAMAX [Suspect]
     Indication: DRUG THERAPY
     Dosage: 25MG - 100MG DAILY
     Route: 048
  4. STEROIDS [Suspect]
     Indication: DRUG USE FOR UNKNOWN INDICATION
  5. SEROQUEL [Concomitant]
     Indication: BIPOLAR DISORDER
  6. LITHIUM CARBONATE [Concomitant]
     Indication: BIPOLAR DISORDER
     Route: 048

REACTIONS (8)
  - ARRHYTHMIA [None]
  - HYPERVENTILATION [None]
  - NAUSEA [None]
  - PAIN [None]
  - TACHYCARDIA [None]
  - THYROID CYST [None]
  - THYROIDITIS [None]
  - WEIGHT DECREASED [None]
